FAERS Safety Report 4345853-0 (Version None)
Quarter: 2004Q2

REPORT INFORMATION
  Report Type: 
  Country: None (occurrence: None)
  Receive Date: 20040423
  Receipt Date: 20040423
  Transmission Date: 20050107
  Serious: Yes (Hospitalization)
  Sender: FDA-Public Use
  Company Number: None

PATIENT
  Age: 27 Year
  Sex: Male

DRUGS (1)
  1. LINEZOLID 600 MG [Suspect]
     Indication: INFECTION
     Dosage: 600 MG Q8 INTRAVENOUS
     Route: 042
     Dates: start: 20040308, end: 20040325

REACTIONS (1)
  - WHITE BLOOD CELL COUNT DECREASED [None]
